FAERS Safety Report 4650878-1 (Version None)
Quarter: 2005Q2

REPORT INFORMATION
  Report Type: 
  Country: None (occurrence: None)
  Receive Date: 20050503
  Receipt Date: 20050329
  Transmission Date: 20051028
  Serious: Yes (Death, Life-Threatening, Hospitalization)
  Sender: FDA-Public Use
  Company Number: PT-JNJFOC-20050201384

PATIENT
  Sex: Female
  Weight: 42.75 kg

DRUGS (23)
  1. REMICADE [Suspect]
     Indication: TEMPORAL ARTERITIS
     Dosage: INFUSIONS ADMINISTERED WEEKS 0, 2 AND 6.
     Route: 042
  2. CORTICOTHERAPY [Concomitant]
  3. IBERSARTAN [Concomitant]
  4. FLUCLOXACILLIN [Concomitant]
     Dosage: 7 DAYS
  5. LEVOFLOXACIN [Concomitant]
     Dosage: 14 DAYS
  6. NIMESULIDE [Concomitant]
     Dosage: 8 DAYS
  7. COTRIMOXAZOL [Concomitant]
  8. COTRIMOXAZOL [Concomitant]
  9. FLUCONAZOLE [Concomitant]
     Dosage: 14 DAYS
  10. GANCICLOVIR [Concomitant]
     Dosage: 8 DAYS
  11. ANFOTERICIN [Concomitant]
     Dosage: 3 DAYS
  12. VANCOMYCIN [Concomitant]
     Dosage: 3 DAYS
  13. PROPAFENONE [Concomitant]
  14. OMERPRAZOLE [Concomitant]
  15. HIDROXIZINE [Concomitant]
  16. NADROPARINE [Concomitant]
  17. FUROSEMIDE [Concomitant]
  18. CAPTOPRIL [Concomitant]
  19. SODIUM ALENDRONATE [Concomitant]
  20. SODIUM DICLOFENAC [Concomitant]
  21. CALCIUM GLUCONATE [Concomitant]
  22. VITAMIN D [Concomitant]
  23. ACETYL SALICYLIC ACID USP BAT [Concomitant]

REACTIONS (1)
  - PNEUMONITIS [None]
